FAERS Safety Report 17136130 (Version 1)
Quarter: 2019Q4

REPORT INFORMATION
  Report Type: Spontaneous
  Country: US (occurrence: US)
  Receive Date: 20191210
  Receipt Date: 20191210
  Transmission Date: 20200122
  Serious: No
  Sender: FDA-Public Use
  Company Number: US-009507513-1912USA004784

PATIENT
  Sex: Female

DRUGS (5)
  1. UBIDECARENONE [Concomitant]
     Active Substance: UBIDECARENONE
  2. ALLEGRA-D [Concomitant]
     Active Substance: FEXOFENADINE\PSEUDOEPHEDRINE
  3. METFORMIN [Concomitant]
     Active Substance: METFORMIN HYDROCHLORIDE
  4. NORFLEX [Concomitant]
     Active Substance: ORPHENADRINE CITRATE
     Dosage: UNK, QD
  5. ZETIA [Suspect]
     Active Substance: EZETIMIBE
     Route: 048

REACTIONS (1)
  - Pain [Unknown]
